FAERS Safety Report 10526907 (Version 2)
Quarter: 2014Q4

REPORT INFORMATION
  Report Type: Spontaneous
  Country: DK (occurrence: DK)
  Receive Date: 20141020
  Receipt Date: 20141020
  Transmission Date: 20150528
  Serious: Yes (Hospitalization, Other)
  Sender: FDA-Public Use
  Company Number: DK-ROCHE-1302245

PATIENT
  Age: 73 Year
  Sex: Female

DRUGS (10)
  1. ACETYLSALICYLSYRE [Concomitant]
     Active Substance: ASPIRIN
     Route: 065
     Dates: start: 20130808
  2. RAMIPRIL. [Concomitant]
     Active Substance: RAMIPRIL
     Route: 065
     Dates: start: 20130808
  3. LUCENTIS [Suspect]
     Active Substance: RANIBIZUMAB
     Indication: DIABETIC RETINAL OEDEMA
     Dosage: 10 MG/ML
     Route: 050
  4. METFORMIN [Concomitant]
     Active Substance: METFORMIN HYDROCHLORIDE
     Route: 065
     Dates: start: 20130808
  5. HJERTEMAGNYL [Concomitant]
     Active Substance: ASPIRIN\MAGNESIUM OXIDE
     Route: 065
     Dates: start: 20130808
  6. LUCENTIS [Suspect]
     Active Substance: RANIBIZUMAB
     Dosage: FOR 73 DAYS, 13TH INJECTION
     Route: 050
     Dates: start: 20130808
  7. LEVEMIR [Concomitant]
     Active Substance: INSULIN DETEMIR
     Route: 065
     Dates: start: 20130808
  8. BETOLVEX [Concomitant]
     Active Substance: CYANOCOBALAMIN
     Route: 065
     Dates: start: 20130808
  9. LUCENTIS [Suspect]
     Active Substance: RANIBIZUMAB
     Dosage: 14 TH INJECTION
     Route: 050
     Dates: start: 20131007
  10. LUCENTIS [Suspect]
     Active Substance: RANIBIZUMAB
     Indication: DIABETIC RETINOPATHY
     Dosage: 12 TH INJECTION
     Route: 050
     Dates: start: 20130726

REACTIONS (4)
  - Uveitis [Recovering/Resolving]
  - Hypersensitivity [Recovered/Resolved]
  - Endophthalmitis [Recovered/Resolved]
  - Eye infection [Recovered/Resolved]

NARRATIVE: CASE EVENT DATE: 20130808
